FAERS Safety Report 23903021 (Version 3)
Quarter: 2024Q4

REPORT INFORMATION
  Report Type: Spontaneous
  Country: US (occurrence: US)
  Receive Date: 20240527
  Receipt Date: 20241007
  Transmission Date: 20250115
  Serious: No
  Sender: ABBVIE
  Company Number: US-ABBVIE-5766212

PATIENT
  Sex: Female

DRUGS (4)
  1. SYNTHROID [Suspect]
     Active Substance: LEVOTHYROXINE SODIUM
     Indication: Thyroid function test abnormal
     Dosage: START DATE TEXT: LONG TIME BACK
     Route: 048
  2. SYNTHROID [Suspect]
     Active Substance: LEVOTHYROXINE SODIUM
     Indication: Thyroid function test abnormal
     Dosage: SMALL DOSE
     Route: 048
     Dates: start: 2024
  3. ABILIFY [Concomitant]
     Active Substance: ARIPIPRAZOLE
     Indication: Product used for unknown indication
  4. ZOLOFT [Concomitant]
     Active Substance: SERTRALINE HYDROCHLORIDE
     Indication: Product used for unknown indication

REACTIONS (10)
  - Homicide [Unknown]
  - Product substitution issue [Unknown]
  - Mania [Unknown]
  - Delusional disorder, unspecified type [Unknown]
  - Weight increased [Unknown]
  - Depression [Unknown]
  - Hypertension [Unknown]
  - Aggression [Unknown]
  - Blood thyroid stimulating hormone abnormal [Unknown]
  - Intentional product misuse [Unknown]
